FAERS Safety Report 4512280-2 (Version None)
Quarter: 2004Q4

REPORT INFORMATION
  Report Type: 
  Country: None (occurrence: None)
  Receive Date: 20041129
  Receipt Date: 20040316
  Transmission Date: 20050328
  Serious: Yes (Other)
  Sender: FDA-Public Use
  Company Number: NL-GLAXOSMITHKLINE-B0326980A

PATIENT
  Age: 56 Year
  Weight: 127 kg

DRUGS (4)
  1. AVANDIA [Suspect]
     Indication: DIABETES MELLITUS NON-INSULIN-DEPENDENT
     Dosage: 4MG PER DAY
     Route: 048
     Dates: start: 20020910, end: 20021014
  2. TRIAMTEREN + HYDROCHLOROTHIAZIDE [Concomitant]
  3. PROPRANOLOL [Concomitant]
     Dosage: 40MG THREE TIMES PER DAY
  4. AMARYL [Concomitant]
     Dosage: 3MG TWICE PER DAY
     Dates: start: 20040724

REACTIONS (3)
  - BLOOD LACTATE DEHYDROGENASE INCREASED [None]
  - GAMMA-GLUTAMYLTRANSFERASE INCREASED [None]
  - HEPATIC FAILURE [None]
